FAERS Safety Report 4729663-8 (Version None)
Quarter: 2005Q3

REPORT INFORMATION
  Report Type: 
  Country: None (occurrence: None)
  Receive Date: 20050801
  Receipt Date: 20050112
  Transmission Date: 20060218
  Serious: Yes (Death, Hospitalization)
  Sender: FDA-Public Use
  Company Number: US-MERCK-0501USA01875

PATIENT
  Age: 71 Year
  Sex: Female
  Weight: 82 kg

DRUGS (5)
  1. VIOXX [Suspect]
     Indication: ARTHRALGIA
     Route: 048
     Dates: start: 20010401, end: 20010101
  2. VIOXX [Suspect]
     Route: 048
     Dates: start: 20010401, end: 20010101
  3. PROCARDIA [Concomitant]
     Indication: HYPERTENSION
     Route: 065
     Dates: start: 19960101, end: 20010809
  4. ALTACE [Concomitant]
     Indication: HYPERTENSION
     Route: 065
     Dates: start: 19960101, end: 20010819
  5. ETODOLAC [Concomitant]
     Indication: PAIN
     Route: 065
     Dates: start: 20010606, end: 20010818

REACTIONS (11)
  - CARDIAC FAILURE CONGESTIVE [None]
  - CORONARY ARTERY THROMBOSIS [None]
  - DEATH [None]
  - DEPRESSION [None]
  - FATIGUE [None]
  - HEART RATE IRREGULAR [None]
  - MYOCARDIAL INFARCTION [None]
  - NAUSEA [None]
  - OEDEMA PERIPHERAL [None]
  - SEPSIS [None]
  - SWELLING [None]
